FAERS Safety Report 14699381 (Version 3)
Quarter: 2018Q2

REPORT INFORMATION
  Report Type: Spontaneous
  Country: DE (occurrence: DE)
  Receive Date: 20180330
  Receipt Date: 20180531
  Transmission Date: 20180711
  Serious: Yes (Life-Threatening, Hospitalization, Other)
  Sender: FDA-Public Use
  Company Number: DE-MYLANLABS-2018M1018601

PATIENT
  Age: 72 Year
  Sex: Male

DRUGS (29)
  1. METAMIZOLE [Interacting]
     Active Substance: METAMIZOLE
     Dosage: 3000 MG, UNK, ON DAY 3 TO 10
     Route: 048
  2. DOBUTAMINE [Concomitant]
     Active Substance: DOBUTAMINE\DOBUTAMINE HYDROCHLORIDE
     Indication: PRODUCT USED FOR UNKNOWN INDICATION
     Dosage: UNK UNK, PRN
  3. VALPROIC ACID. [Suspect]
     Active Substance: VALPROIC ACID
     Dosage: 1000 MG, ON DAY 1
     Route: 042
  4. ATORVASTATIN [Concomitant]
     Active Substance: ATORVASTATIN
     Indication: CORONARY ARTERY DISEASE
     Dosage: 40 MG, QD
  5. VALPROIC ACID. [Suspect]
     Active Substance: VALPROIC ACID
     Dosage: 1500 MG, ON DAY 7
     Route: 048
  6. METAMIZOLE [Interacting]
     Active Substance: METAMIZOLE
     Dosage: 3000 MG, UNK, ON DAY 2
     Route: 042
  7. ACETYLSALICYLIC ACID [Concomitant]
     Active Substance: ASPIRIN
     Indication: PRODUCT USED FOR UNKNOWN INDICATION
     Dosage: 100 MG, QD
  8. VALPROIC ACID. [Suspect]
     Active Substance: VALPROIC ACID
     Indication: MYOCLONIC EPILEPSY
     Dosage: UNK
     Route: 042
  9. VALPROIC ACID. [Suspect]
     Active Substance: VALPROIC ACID
     Dosage: 1500 MG, ON DAY 2
     Route: 042
  10. METAMIZOLE [Interacting]
     Active Substance: METAMIZOLE
     Indication: PROCEDURAL PAIN
     Dosage: UNK
     Route: 042
  11. SUCRALFATE. [Concomitant]
     Active Substance: SUCRALFATE
     Indication: PRODUCT USED FOR UNKNOWN INDICATION
     Dosage: UNK UNK, PRN
  12. CALCIUM GLUCONATE. [Concomitant]
     Active Substance: CALCIUM GLUCONATE
     Indication: PRODUCT USED FOR UNKNOWN INDICATION
     Dosage: UNK UNK, PRN
  13. METILDIGOXIN [Concomitant]
     Active Substance: METILDIGOXIN
     Indication: PRODUCT USED FOR UNKNOWN INDICATION
     Dosage: 0.1 MG, QD
  14. VALPROIC ACID. [Suspect]
     Active Substance: VALPROIC ACID
     Dosage: 900 MG, UNK, ON DAY 6
     Route: 048
  15. HYDROCHLOROTHIAZIDE. [Concomitant]
     Active Substance: HYDROCHLOROTHIAZIDE
     Indication: PRODUCT USED FOR UNKNOWN INDICATION
     Dosage: 12.5 MG, QD
  16. AMIODARONE [Concomitant]
     Active Substance: AMIODARONE
     Indication: PRODUCT USED FOR UNKNOWN INDICATION
     Dosage: UNK UNK, PRN
  17. PIRITRAMIDE [Concomitant]
     Active Substance: PIRITRAMIDE
     Indication: PROCEDURAL PAIN
     Dosage: 15 MG/ML, PRN
     Route: 040
  18. METOPROLOL. [Concomitant]
     Active Substance: METOPROLOL
     Indication: PRODUCT USED FOR UNKNOWN INDICATION
     Dosage: 95 MG, QD
  19. VALPROIC ACID. [Suspect]
     Active Substance: VALPROIC ACID
     Indication: MYOCLONIC EPILEPSY
     Dosage: UNK
     Route: 048
  20. POTASSIUM CHLORIDE. [Concomitant]
     Active Substance: POTASSIUM CHLORIDE
     Indication: PRODUCT USED FOR UNKNOWN INDICATION
     Dosage: UNK UNK, PRN
  21. VALPROIC ACID MYLAN [Suspect]
     Active Substance: VALPROIC ACID
     Indication: PRODUCT USED FOR UNKNOWN INDICATION
     Dosage: 450 MG, BID
  22. METAMIZOLE [Interacting]
     Active Substance: METAMIZOLE
     Dosage: 1000 MG, UNK, ON DAY 1
     Route: 042
  23. QUETIAPINE. [Concomitant]
     Active Substance: QUETIAPINE
     Indication: PRODUCT USED FOR UNKNOWN INDICATION
     Dosage: 25 MG, QD
  24. ALLOPURINOL. [Concomitant]
     Active Substance: ALLOPURINOL
     Indication: PRODUCT USED FOR UNKNOWN INDICATION
     Dosage: 300 MG, QD
  25. METAMIZOLE [Interacting]
     Active Substance: METAMIZOLE
     Indication: PROCEDURAL PAIN
     Dosage: UNK
     Route: 048
  26. ACETYLCYSTEINE. [Concomitant]
     Active Substance: ACETYLCYSTEINE
     Indication: PRODUCT USED FOR UNKNOWN INDICATION
     Dosage: UNK UNK, PRN
  27. INSULIN [Concomitant]
     Active Substance: INSULIN NOS
     Indication: PRODUCT USED FOR UNKNOWN INDICATION
     Dosage: UNK UNK, PRN
  28. EPINEPHRINE. [Concomitant]
     Active Substance: EPINEPHRINE
     Indication: PRODUCT USED FOR UNKNOWN INDICATION
     Dosage: UNK UNK, PRN
  29. MAGNESIUM ASPARTATE [Concomitant]
     Active Substance: MAGNESIUM ASPARTATE
     Indication: PRODUCT USED FOR UNKNOWN INDICATION
     Dosage: UNK UNK, PRN

REACTIONS (4)
  - Myoclonic epilepsy [Unknown]
  - Drug interaction [Unknown]
  - Drug level below therapeutic [Recovering/Resolving]
  - Acute myocardial infarction [Unknown]
